FAERS Safety Report 7736519-5 (Version None)
Quarter: 2011Q3

REPORT INFORMATION
  Report Type: 
  Country: None (occurrence: None)
  Receive Date: 20110902
  Receipt Date: 20110819
  Transmission Date: 20111222
  Serious: Yes (Hospitalization)
  Sender: FDA-Public Use
  Company Number: 20110611

PATIENT
  Age: 93 Year
  Sex: Female

DRUGS (11)
  1. VENOFER [Suspect]
     Indication: IRON DEFICIENCY ANAEMIA
     Dosage: 200 MG INTRAVENOUS
     Route: 042
     Dates: start: 20110601, end: 20110721
  2. AMLODIPINE [Concomitant]
  3. LEXOMIL (BROMAZEPAM) [Concomitant]
  4. UNSPECIFIED(FUROSEMIDE) [Concomitant]
  5. MOVICOL (SODIUM CHLORIDE) [Concomitant]
  6. POLYETHYLENE GLYCOL [Concomitant]
  7. UNSPECIFIED(NEVIBOLOL) [Concomitant]
  8. SODIUM BICARBONATE [Concomitant]
  9. CRESTOR [Concomitant]
  10. POTASSIUM CHLORIDE [Concomitant]
  11. UNSPECIFIED(OMEPRAZOLE) [Concomitant]

REACTIONS (5)
  - VENOUS THROMBOSIS [None]
  - INJECTION SITE INFLAMMATION [None]
  - INJECTION SITE OEDEMA [None]
  - PAIN [None]
  - INJECTION SITE ERYTHEMA [None]
